FAERS Safety Report 9879272 (Version 2)
Quarter: 2014Q2

REPORT INFORMATION
  Report Type: Report from Study
  Country: GR (occurrence: GR)
  Receive Date: 20140206
  Receipt Date: 20140429
  Transmission Date: 20141212
  Serious: Yes (Hospitalization, Other)
  Sender: FDA-Public Use
  Company Number: GR-CELGENEUS-066-21880-14014126

PATIENT
  Age: 80 Year
  Sex: Female
  Weight: 63 kg

DRUGS (12)
  1. REVLIMID [Suspect]
     Indication: PLASMA CELL MYELOMA
     Dosage: 15 MILLIGRAM
     Route: 048
     Dates: start: 20090901, end: 20090921
  2. REVLIMID [Suspect]
     Dosage: 25 MILLIGRAM
     Route: 048
     Dates: start: 20091201, end: 20091221
  3. REVLIMID [Suspect]
     Dosage: 15 MILLIGRAM
     Route: 048
     Dates: start: 20101005, end: 20101025
  4. REVLIMID [Suspect]
     Dosage: 15 MILLIGRAM
     Route: 048
     Dates: start: 20130214, end: 20130307
  5. THALIDOMIDE CELGENE [Suspect]
     Indication: PLASMA CELL MYELOMA
     Route: 065
     Dates: start: 200805, end: 200904
  6. DEXAMETHASONE [Suspect]
     Indication: PLASMA CELL MYELOMA
     Route: 065
     Dates: start: 199906, end: 200002
  7. DEXAMETHASONE [Suspect]
     Route: 065
     Dates: start: 200612, end: 200705
  8. DEXAMETHASONE [Suspect]
     Route: 065
     Dates: start: 200805, end: 200904
  9. DEXAMETHASONE [Suspect]
     Route: 048
     Dates: start: 20090929, end: 20091101
  10. DEXAMETHASONE [Suspect]
     Route: 048
     Dates: start: 20110824, end: 20110921
  11. DEXAMETHASONE [Suspect]
     Route: 048
     Dates: start: 20121211, end: 20130307
  12. ASPIRINE [Concomitant]
     Indication: PROPHYLAXIS
     Route: 065

REACTIONS (1)
  - Oesophageal squamous cell carcinoma [Recovered/Resolved]
